FAERS Safety Report 8833382 (Version 1)
Quarter: 2012Q4

REPORT INFORMATION
  Report Type: 
  Country: US (occurrence: US)
  Receive Date: 20121010
  Receipt Date: 20121010
  Transmission Date: 20130627
  Serious: Yes (Other)
  Sender: FDA-Public Use
  Company Number: US-PFIZER INC-2012250784

PATIENT
  Age: 18 Year
  Sex: Male
  Weight: 81.63 kg

DRUGS (2)
  1. PRISTIQ [Suspect]
     Indication: ANGER
     Dosage: UNK, 1x/day
     Route: 048
     Dates: end: 20120930
  2. PRISTIQ [Suspect]
     Indication: AFFECT LABILITY

REACTIONS (3)
  - Road traffic accident [Unknown]
  - Jaw fracture [Unknown]
  - Off label use [Unknown]
